FAERS Safety Report 21596388 (Version 1)
Quarter: 2022Q4

REPORT INFORMATION
  Report Type: Spontaneous
  Country: US (occurrence: US)
  Receive Date: 20221115
  Receipt Date: 20221115
  Transmission Date: 20230112
  Serious: Yes (Death, Other)
  Sender: FDA-Public Use
  Company Number: US-GLAXOSMITHKLINE-US2022167225

PATIENT

DRUGS (8)
  1. TRELEGY ELLIPTA [Suspect]
     Active Substance: FLUTICASONE FUROATE\UMECLIDINIUM BROMIDE\VILANTEROL TRIFENATATE
     Indication: Respiratory failure
     Dosage: 100 UG, QD
     Dates: end: 20221024
  2. LORAZEPAM [Concomitant]
     Active Substance: LORAZEPAM
     Indication: Anxiety
     Dosage: 1 DF, TID OR AS NEEDED
     Dates: start: 202210, end: 202210
  3. AMLODIPINE [Concomitant]
     Active Substance: AMLODIPINE BESYLATE
     Indication: Hypertension
     Dosage: UNK UNK, QD
     Dates: start: 202210, end: 202210
  4. TRAZODONE [Concomitant]
     Active Substance: TRAZODONE HYDROCHLORIDE
     Indication: Depression
     Dosage: 2 DF, QD AT BEDTIME
     Dates: start: 20220809, end: 202209
  5. TRAZODONE [Concomitant]
     Active Substance: TRAZODONE HYDROCHLORIDE
     Indication: Sleep disorder
  6. BASAGLAR [Concomitant]
     Active Substance: INSULIN GLARGINE
     Indication: Diabetes mellitus
     Dosage: 15 IU, QD
     Route: 058
     Dates: start: 20220705, end: 202209
  7. HYDRALAZINE [Concomitant]
     Active Substance: HYDRALAZINE HYDROCHLORIDE
     Indication: Hypertension
     Dosage: 2 DF, TID
     Dates: start: 20220705, end: 20220824
  8. OLANZAPINE [Concomitant]
     Active Substance: OLANZAPINE
     Indication: Mental disorder
     Dosage: 1 DF, BID
     Dates: start: 202208, end: 20220804

REACTIONS (7)
  - Aspiration [Fatal]
  - Cerebrovascular accident [Fatal]
  - Fall [Fatal]
  - Multiple fractures [Fatal]
  - Chronic kidney disease [Fatal]
  - Chronic respiratory failure [Fatal]
  - Diabetes mellitus [Fatal]

NARRATIVE: CASE EVENT DATE: 20221024
